FAERS Safety Report 23969526 (Version 1)
Quarter: 2024Q2

REPORT INFORMATION
  Report Type: Report from Study
  Country: US (occurrence: US)
  Receive Date: 20240612
  Receipt Date: 20240612
  Transmission Date: 20240717
  Serious: Yes (Hospitalization, Other)
  Sender: FDA-Public Use
  Company Number: US-ABBVIE-5797460

PATIENT
  Sex: Male

DRUGS (2)
  1. VENCLEXTA [Suspect]
     Active Substance: VENETOCLAX
     Indication: Nasopharyngeal cancer
     Dosage: FORM STRENGTH: 100 MILLIGRAM?TAKE 2 TABLETS BY MOUTH ONCE DAILY WITH FOOD AND A FULL GLASS OF WATER
     Route: 048
  2. VENCLEXTA [Suspect]
     Active Substance: VENETOCLAX
     Indication: Nasopharyngeal cancer
     Dosage: FORM STRENGTH: 100 MILLIGRAM
     Route: 048

REACTIONS (5)
  - Pulmonary oedema [Not Recovered/Not Resolved]
  - Constipation [Not Recovered/Not Resolved]
  - Hospitalisation [Unknown]
  - Muscular weakness [Not Recovered/Not Resolved]
  - Illness [Not Recovered/Not Resolved]
